FAERS Safety Report 5640528-X (Version None)
Quarter: 2008Q1

REPORT INFORMATION
  Report Type: 
  Country: None (occurrence: None)
  Receive Date: 20080131
  Receipt Date: 20071107
  Transmission Date: 20080703
  Serious: No
  Sender: FDA-Public Use
  Company Number: 163-21880-07110491

PATIENT
  Age: 57 Year
  Sex: Male
  Weight: 102.9665 kg

DRUGS (6)
  1. REVLIMID [Suspect]
     Indication: MULTIPLE MYELOMA
     Dosage: 10 MG, DAILY X 21 DAYS, ORAL ; 25 MG, DAILY X 21 DAYS, ORAL ; 25 MG, DAILY X 21 DAYS, ORAL
     Route: 048
     Dates: start: 20070206, end: 20070701
  2. REVLIMID [Suspect]
     Indication: MULTIPLE MYELOMA
     Dosage: 10 MG, DAILY X 21 DAYS, ORAL ; 25 MG, DAILY X 21 DAYS, ORAL ; 25 MG, DAILY X 21 DAYS, ORAL
     Route: 048
     Dates: start: 20060901
  3. REVLIMID [Suspect]
     Indication: MULTIPLE MYELOMA
     Dosage: 10 MG, DAILY X 21 DAYS, ORAL ; 25 MG, DAILY X 21 DAYS, ORAL ; 25 MG, DAILY X 21 DAYS, ORAL
     Route: 048
     Dates: start: 20070926
  4. PROCRIT [Concomitant]
  5. AVANDIA [Concomitant]
  6. VELCADE [Concomitant]

REACTIONS (1)
  - LABORATORY TEST ABNORMAL [None]
